FAERS Safety Report 6215073-3 (Version None)
Quarter: 2009Q2

REPORT INFORMATION
  Report Type: 
  Country: None (occurrence: None)
  Receive Date: 20090604
  Receipt Date: 20090225
  Transmission Date: 20091009
  Serious: No
  Sender: FDA-Public Use
  Company Number: US-ASTRAZENECA-2009UW05291

PATIENT
  Age: 46 Year
  Sex: Female

DRUGS (2)
  1. PRILOSEC [Suspect]
     Route: 048
  2. TOPAMAX [Suspect]
     Dosage: UNKNOWN
     Route: 065

REACTIONS (5)
  - DYSARTHRIA [None]
  - FALL [None]
  - FEELING ABNORMAL [None]
  - RIB FRACTURE [None]
  - SOMNOLENCE [None]
